FAERS Safety Report 9423072 (Version 6)
Quarter: 2013Q4

REPORT INFORMATION
  Report Type: Report from Study
  Country: GB (occurrence: GB)
  Receive Date: 20130726
  Receipt Date: 20131011
  Transmission Date: 20140711
  Serious: Yes (Life-Threatening, Hospitalization)
  Sender: FDA-Public Use
  Company Number: GB-GLAXOSMITHKLINE-B0910400A

PATIENT
  Age: 60 Year
  Sex: Female

DRUGS (5)
  1. LAPATINIB [Suspect]
     Indication: ADENOCARCINOMA
     Dosage: 1250MG PER DAY
     Route: 048
     Dates: start: 20120715
  2. OXALIPLATIN [Suspect]
     Indication: ADENOCARCINOMA
     Dosage: 256MG CYCLIC
     Route: 042
     Dates: start: 20120725
  3. CAPECITABINE [Suspect]
     Indication: ADENOCARCINOMA
     Dosage: 1650MG TWICE PER DAY
     Route: 048
     Dates: start: 20120725
  4. FENTANYL [Concomitant]
     Dosage: .125UG CONTINUOUS
     Route: 042
     Dates: start: 20121102
  5. PROPOFOL [Concomitant]
     Dosage: 50UG CONTINUOUS
     Route: 042
     Dates: start: 20121102

REACTIONS (1)
  - Atelectasis [Recovered/Resolved]
